FAERS Safety Report 17128824 (Version 1)
Quarter: 2019Q4

REPORT INFORMATION
  Report Type: Spontaneous
  Country: US (occurrence: US)
  Receive Date: 20191207
  Receipt Date: 20191207
  Transmission Date: 20200122
  Serious: Yes (Life-Threatening, Hospitalization, Other)
  Sender: FDA-Public Use
  Company Number: None

PATIENT
  Age: 25 Year
  Sex: Female
  Weight: 43.65 kg

DRUGS (8)
  1. SEROQUEL [Concomitant]
     Active Substance: QUETIAPINE FUMARATE
  2. VITAMIN D [Concomitant]
     Active Substance: VITAMIN D NOS
  3. VITAMIN B12 [Concomitant]
     Active Substance: CYANOCOBALAMIN
  4. LITHIUM. [Concomitant]
     Active Substance: LITHIUM
  5. L-METHAFOLATE [Concomitant]
  6. ATIVAN [Concomitant]
     Active Substance: LORAZEPAM
  7. CYMBALTA [Suspect]
     Active Substance: DULOXETINE HYDROCHLORIDE
     Indication: ANXIETY
     Dates: start: 20191015, end: 20191112
  8. VYVANSE [Concomitant]
     Active Substance: LISDEXAMFETAMINE DIMESYLATE

REACTIONS (7)
  - Photosensitivity reaction [None]
  - Hyperacusis [None]
  - Suicidal ideation [None]
  - Serotonin syndrome [None]
  - Gastric disorder [None]
  - Migraine [None]
  - Drug withdrawal syndrome [None]

NARRATIVE: CASE EVENT DATE: 20191111
